FAERS Safety Report 4545218-2 (Version None)
Quarter: 2005Q1

REPORT INFORMATION
  Report Type: 
  Country: None (occurrence: None)
  Receive Date: 20050103
  Receipt Date: 20050103
  Transmission Date: 20050727
  Serious: Yes (Hospitalization)
  Sender: FDA-Public Use
  Company Number: None

PATIENT
  Age: 87 Year
  Sex: Female
  Weight: 63.05 kg

DRUGS (11)
  1. VISUDYNE [Suspect]
     Indication: MACULAR DEGENERATION
     Dosage: 5.0 ML IV (VISUDYNE)
     Route: 042
     Dates: start: 20040330
  2. KENALOG-40 [Suspect]
     Indication: MACULAR DEGENERATION
     Dosage: 4 MG INTRAVITREAL
     Route: 050
     Dates: start: 20040330
  3. NORVASC [Concomitant]
  4. ATENOLOL [Concomitant]
  5. PAXIL [Concomitant]
  6. LIPITOR [Concomitant]
  7. ZANTAC [Concomitant]
  8. CELEBREX [Concomitant]
  9. ACTINELL [Concomitant]
  10. ALLEGRA [Concomitant]
  11. OCUFLOX [Concomitant]

REACTIONS (4)
  - ABDOMINAL DISCOMFORT [None]
  - ANOREXIA [None]
  - ASTHENIA [None]
  - DIVERTICULUM [None]
